FAERS Safety Report 7993043-2 (Version None)
Quarter: 2011Q4

REPORT INFORMATION
  Report Type: 
  Country: None (occurrence: None)
  Receive Date: 20111219
  Receipt Date: 20111216
  Transmission Date: 20120403
  Serious: No
  Sender: FDA-Public Use
  Company Number: US-BAYER-2011-121653

PATIENT
  Age: 82 Year
  Sex: Female

DRUGS (1)
  1. NAPROXEN (ALEVE) [Suspect]
     Indication: ARTHRALGIA
     Dosage: 2 DF, QD
     Route: 048
     Dates: start: 20111101

REACTIONS (1)
  - NO ADVERSE EVENT [None]
